FAERS Safety Report 7698793-3 (Version None)
Quarter: 2011Q3

REPORT INFORMATION
  Report Type: 
  Country: None (occurrence: None)
  Receive Date: 20110819
  Receipt Date: 20110805
  Transmission Date: 20111222
  Serious: Yes (Other)
  Sender: FDA-Public Use
  Company Number: US-JUTA GMBH-2011-12522

PATIENT
  Sex: Male
  Weight: 55.329 kg

DRUGS (1)
  1. METFORMIN HCL [Suspect]
     Indication: DIABETES MELLITUS
     Dosage: 850 MG, BID
     Route: 048
     Dates: start: 19900101, end: 20100801

REACTIONS (2)
  - BLOOD CREATINE INCREASED [None]
  - RENAL FAILURE [None]
